FAERS Safety Report 8477185-3 (Version None)
Quarter: 2012Q2

REPORT INFORMATION
  Report Type: 
  Country: None (occurrence: None)
  Receive Date: 20120625
  Receipt Date: 20120625
  Transmission Date: 20120825
  Serious: No
  Sender: FDA-Public Use
  Company Number: None

PATIENT
  Age: 64 Year
  Sex: Male
  Weight: 99.7913 kg

DRUGS (2)
  1. ALLEGRA D 24 HOUR [Suspect]
     Indication: HYPERSENSITIVITY
     Dates: start: 20120306, end: 20120623
  2. ALLEGRA D 24 HOUR [Suspect]
     Indication: NASOPHARYNGITIS
     Dates: start: 20120306, end: 20120623

REACTIONS (1)
  - DYSURIA [None]
